FAERS Safety Report 15228478 (Version 3)
Quarter: 2019Q3

REPORT INFORMATION
  Report Type: Spontaneous
  Country: US (occurrence: US)
  Receive Date: 20180801
  Receipt Date: 20190821
  Transmission Date: 20191004
  Serious: No
  Sender: FDA-Public Use
  Company Number: US-BAUSCH-BL-2018-020663

PATIENT
  Age: 86 Year
  Sex: Female

DRUGS (3)
  1. DORZOLAMIDE HYDROCHLORIDE AND TIMOLOL MALEATE [Suspect]
     Active Substance: DORZOLAMIDE HYDROCHLORIDE\TIMOLOL MALEATE
     Indication: GLAUCOMA
     Route: 047
  2. LATANOPROST. [Concomitant]
     Active Substance: LATANOPROST
     Indication: PRODUCT USED FOR UNKNOWN INDICATION
  3. DORZOLAMIDE HYDROCHLORIDE AND TIMOLOL MALEATE [Suspect]
     Active Substance: DORZOLAMIDE HYDROCHLORIDE\TIMOLOL MALEATE
     Route: 047

REACTIONS (2)
  - Product lot number issue [Recovered/Resolved]
  - Pain [Recovered/Resolved]

NARRATIVE: CASE EVENT DATE: 201807
